FAERS Safety Report 14505951 (Version 1)
Quarter: 2018Q1

REPORT INFORMATION
  Report Type: Spontaneous
  Country: US (occurrence: US)
  Receive Date: 20180207
  Receipt Date: 20180207
  Transmission Date: 20180509
  Serious: Yes (Other)
  Sender: FDA-Public Use
  Company Number: None

PATIENT
  Age: 87 Year
  Sex: Male
  Weight: 103.5 kg

DRUGS (4)
  1. LISINOPRIL. [Concomitant]
     Active Substance: LISINOPRIL
  2. ATORVASTATIN [Concomitant]
     Active Substance: ATORVASTATIN
  3. GLIPIZIDE ER [Concomitant]
     Active Substance: GLIPIZIDE
  4. LEUKERAN [Suspect]
     Active Substance: CHLORAMBUCIL
     Dosage: ?          OTHER FREQUENCY:28MG ON DAY 1+ 15;?
     Route: 048
     Dates: start: 20180108, end: 20180125

REACTIONS (1)
  - Respiratory syncytial virus infection [None]
